FAERS Safety Report 13547942 (Version 1)
Quarter: 2017Q2

REPORT INFORMATION
  Report Type: Spontaneous
  Country: US (occurrence: US)
  Receive Date: 20170516
  Receipt Date: 20170516
  Transmission Date: 20170830
  Serious: Yes (Hospitalization, Other)
  Sender: FDA-Public Use
  Company Number: US-LUPIN PHARMACEUTICALS INC.-2017-02167

PATIENT
  Age: 53 Year
  Sex: Male

DRUGS (3)
  1. ERTAPENEM [Concomitant]
     Active Substance: ERTAPENEM
     Indication: OSTEOMYELITIS
     Dosage: UNK
     Route: 065
  2. IBUPROFEN. [Concomitant]
     Active Substance: IBUPROFEN
     Indication: PAIN
     Dosage: UNK
     Route: 065
  3. VANCOMYCIN [Suspect]
     Active Substance: VANCOMYCIN
     Indication: OSTEOMYELITIS
     Dosage: 2 G, BID, 15.75 MG/KG
     Route: 065

REACTIONS (1)
  - Acute kidney injury [Recovered/Resolved]
